FAERS Safety Report 5248420-X (Version None)
Quarter: 2007Q1

REPORT INFORMATION
  Report Type: 
  Country: None (occurrence: None)
  Receive Date: 20070222
  Receipt Date: 20070209
  Transmission Date: 20070707
  Serious: Yes (Other)
  Sender: FDA-Public Use
  Company Number: 2006300118

PATIENT
  Age: 70 Year
  Sex: Female
  Weight: 56.2 kg

DRUGS (11)
  1. ROGAINE [Suspect]
     Indication: ALOPECIA
     Dosage: 1 ML TWICE DAILY (1 ML, 2 IN 1 D), TOPICAL
     Route: 061
     Dates: start: 20020501
  2. ROGAINE [Suspect]
  3. COUMADIN [Concomitant]
  4. IRON (IRON) [Concomitant]
  5. VITAMIN C (VITAMIN C) [Concomitant]
  6. CALCIUM (CALCIUM) [Concomitant]
  7. PREMARIN [Concomitant]
  8. FOSAMAX [Concomitant]
  9. DICLOFENAC (DICLOFENAC) [Concomitant]
  10. STRESS TABS (DRUG, UNSPECIFIED) [Concomitant]
  11. CILICA (BENZYLPENICILLIN PROCAINE) [Concomitant]

REACTIONS (3)
  - ALOPECIA [None]
  - HIP ARTHROPLASTY [None]
  - PRURITUS [None]
